FAERS Safety Report 8694366 (Version 3)
Quarter: 2012Q4

REPORT INFORMATION
  Report Type: Report from Study
  Country: NL (occurrence: NL)
  Receive Date: 20120731
  Receipt Date: 20121018
  Transmission Date: 20130627
  Serious: Yes (Other)
  Sender: FDA-Public Use
  Company Number: NL-CELGENEUS-114-21880-12071992

PATIENT
  Age: 84 Year
  Sex: Female
  Weight: 59 kg

DRUGS (5)
  1. REVLIMID [Suspect]
     Indication: MULTIPLE MYELOMA
     Route: 048
     Dates: start: 20120310
  2. OMEPRAZOLE [Concomitant]
     Indication: PROPHYLAXIS
     Route: 048
     Dates: start: 20120323
  3. APO [Concomitant]
     Indication: DRUG USE FOR UNKNOWN INDICATION
     Route: 048
     Dates: start: 20100315
  4. MOVICELA [Concomitant]
     Indication: OBSTIPATION
     Route: 065
     Dates: start: 20111018
  5. SOTALOL [Concomitant]
     Indication: CARDIAC ARRHYTHMIA NOS
     Route: 065

REACTIONS (1)
  - Meningioma [Not Recovered/Not Resolved]
